FAERS Safety Report 8096467-0 (Version None)
Quarter: 2012Q1

REPORT INFORMATION
  Report Type: 
  Country: None (occurrence: None)
  Receive Date: 20120129
  Receipt Date: 20111213
  Transmission Date: 20120608
  Serious: No
  Sender: FDA-Public Use
  Company Number: US-ABBOTT-11P-163-0883095-00

PATIENT
  Age: 53 Year
  Sex: Female

DRUGS (5)
  1. ATENOLOL [Concomitant]
     Indication: HYPERTENSION
     Dosage: DAILY
  2. GLIPIZIDE [Concomitant]
     Indication: DIABETES MELLITUS
     Dosage: DAILY
  3. HALDOL [Concomitant]
     Indication: SCHIZOPHRENIA
     Dosage: DAILY
  4. DEPAKOTE [Concomitant]
     Indication: SCHIZOPHRENIA
     Dosage: DAILY
  5. HUMIRA [Suspect]
     Indication: PSORIASIS
     Dates: start: 20111209

REACTIONS (1)
  - DRUG INEFFECTIVE [None]
